FAERS Safety Report 16545147 (Version 1)
Quarter: 2019Q3

REPORT INFORMATION
  Report Type: Spontaneous
  Country: CA (occurrence: CA)
  Receive Date: 20190709
  Receipt Date: 20190709
  Transmission Date: 20191004
  Serious: Yes (Other)
  Sender: FDA-Public Use
  Company Number: CA-TEVA-2019-CA-1073113

PATIENT
  Age: 25 Year
  Sex: Female

DRUGS (4)
  1. AMLODIPINE BESILATE [Suspect]
     Active Substance: AMLODIPINE BESYLATE
     Indication: PRODUCT USED FOR UNKNOWN INDICATION
     Dosage: 10 MILLIGRAM DAILY;
     Route: 065
  2. QUETIAPINE FUMARATE. [Concomitant]
     Active Substance: QUETIAPINE FUMARATE
     Dosage: 37.5 MILLIGRAM DAILY;
  3. ESCITALOPRAM OXALATE. [Concomitant]
     Active Substance: ESCITALOPRAM OXALATE
     Dosage: 10 MILLIGRAM DAILY;
  4. ESTRADOT [Concomitant]
     Active Substance: ESTRADIOL

REACTIONS (6)
  - Skin infection [Recovered/Resolved]
  - Folliculitis [Recovered/Resolved]
  - Skin disorder [Recovered/Resolved]
  - Fungal infection [Recovered/Resolved]
  - Weight increased [Recovered/Resolved]
  - Ankylosing spondylitis [Recovered/Resolved]
